FAERS Safety Report 23409205 (Version 1)
Quarter: 2024Q1

REPORT INFORMATION
  Report Type: Spontaneous
  Country: IL (occurrence: IL)
  Receive Date: 20240117
  Receipt Date: 20240117
  Transmission Date: 20240409
  Serious: Yes (Other)
  Sender: FDA-Public Use
  Company Number: IL-PFIZER INC-202400009358

PATIENT
  Age: 14 Year
  Sex: Male

DRUGS (2)
  1. INFLIXIMAB [Suspect]
     Active Substance: INFLIXIMAB
     Indication: Crohn^s disease
     Dosage: UNK
  2. AZATHIOPRINE [Concomitant]
     Active Substance: AZATHIOPRINE
     Indication: Crohn^s disease
     Dosage: UNK

REACTIONS (5)
  - Blepharitis [Recovered/Resolved]
  - Skin infection [Recovered/Resolved]
  - Eyelid erosion [Recovered/Resolved]
  - Chalazion [Recovered/Resolved]
  - Ciliary hyperaemia [Recovered/Resolved]
